FAERS Safety Report 6201652-6 (Version None)
Quarter: 2009Q2

REPORT INFORMATION
  Report Type: 
  Country: None (occurrence: None)
  Receive Date: 20090526
  Receipt Date: 20080529
  Transmission Date: 20091009
  Serious: No
  Sender: FDA-Public Use
  Company Number: US-BRISTOL-MYERS SQUIBB COMPANY-14142657

PATIENT
  Age: 69 Year
  Sex: Female

DRUGS (7)
  1. BARACLUDE [Suspect]
     Indication: HEPATITIS B VIRUS TEST
     Route: 048
     Dates: start: 20070901
  2. PREVACID [Concomitant]
  3. LIPITOR [Concomitant]
  4. LASIX [Concomitant]
  5. INSULIN [Concomitant]
  6. ZETIA [Concomitant]
  7. NEURONTIN [Concomitant]

REACTIONS (1)
  - EXTRAPYRAMIDAL DISORDER [None]
